FAERS Safety Report 7926845-9 (Version None)
Quarter: 2011Q4

REPORT INFORMATION
  Report Type: 
  Country: None (occurrence: None)
  Receive Date: 20111116
  Receipt Date: 20111102
  Transmission Date: 20120403
  Serious: Yes (Other)
  Sender: FDA-Public Use
  Company Number: 2011-353

PATIENT
  Sex: Male

DRUGS (2)
  1. PRIALT [Suspect]
     Indication: COMPLEX REGIONAL PAIN SYNDROME
     Dosage: 0.05;0.1;0.15; 0.2 UG, ONCE/HOUR, INTRATHECAL
     Route: 037
  2. REQUI9P (ROPINIROLE HYDROCHLORIDE) [Concomitant]

REACTIONS (2)
  - RESTLESS LEGS SYNDROME [None]
  - CONDITION AGGRAVATED [None]
